FAERS Safety Report 13746430 (Version 1)
Quarter: 2017Q3

REPORT INFORMATION
  Report Type: Report from Study
  Country: None (occurrence: US)
  Receive Date: 20170712
  Receipt Date: 20170712
  Transmission Date: 20171127
  Serious: No
  Sender: FDA-Public Use
  Company Number: US-IPSEN BIOPHARMACEUTICALS, INC.-2014-2773

PATIENT
  Age: 29 Year
  Sex: Male
  Weight: 91 kg

DRUGS (1)
  1. SOMATULINE DEPOT [Suspect]
     Active Substance: LANREOTIDE ACETATE
     Indication: ACROMEGALY
     Dosage: 90MG
     Route: 030
     Dates: start: 20130722, end: 20130923

REACTIONS (7)
  - Fatigue [Unknown]
  - Nausea [Unknown]
  - Dizziness [Unknown]
  - Incorrect route of drug administration [Unknown]
  - Gallbladder enlargement [Unknown]
  - Hyperhidrosis [Unknown]
  - Abdominal pain [None]

NARRATIVE: CASE EVENT DATE: 20130722
